FAERS Safety Report 21705745 (Version 2)
Quarter: 2024Q3

REPORT INFORMATION
  Report Type: Spontaneous
  Country: US (occurrence: US)
  Receive Date: 20221209
  Receipt Date: 20240923
  Transmission Date: 20241016
  Serious: Yes (Other)
  Sender: GLAXOSMITHKLINE
  Company Number: US-GLAXOSMITHKLINE-US2022AMR024215

PATIENT

DRUGS (2)
  1. BENLYSTA [Suspect]
     Active Substance: BELIMUMAB
     Indication: Systemic lupus erythematosus
     Dosage: 10 MG/KG, Q4W0 MG/KG
     Route: 042
  2. BENLYSTA [Suspect]
     Active Substance: BELIMUMAB
     Indication: Systemic lupus erythematosus
     Dosage: 200 MG, WE,EVERY 7 DAYS
     Route: 058

REACTIONS (6)
  - Systemic lupus erythematosus [Unknown]
  - Fatigue [Unknown]
  - Diarrhoea [Unknown]
  - Adverse drug reaction [Unknown]
  - Drug ineffective [Unknown]
  - Product dose omission issue [Unknown]
